FAERS Safety Report 25940006 (Version 1)
Quarter: 2025Q4

REPORT INFORMATION
  Report Type: Spontaneous
  Country: CN (occurrence: CN)
  Receive Date: 20251020
  Receipt Date: 20251020
  Transmission Date: 20260117
  Serious: Yes (Hospitalization, Other)
  Sender: SANOFI AVENTIS
  Company Number: CN-SA-2025SA309790

PATIENT
  Age: 24 Year
  Sex: Female

DRUGS (3)
  1. DUPIXENT [Suspect]
     Active Substance: DUPILUMAB
     Indication: Dermatitis atopic
     Dosage: 300 MG, EVERY 40 DAYS
     Route: 065
     Dates: start: 202110, end: 202408
  2. DUPIXENT [Suspect]
     Active Substance: DUPILUMAB
     Dosage: UNK
     Route: 065
     Dates: start: 202506
  3. UPADACITINIB [Suspect]
     Active Substance: UPADACITINIB
     Indication: Rash
     Dosage: UNK
     Route: 065
     Dates: start: 202501, end: 202503

REACTIONS (8)
  - Pneumonia [Unknown]
  - Dyshidrotic eczema [Unknown]
  - Pruritus [Unknown]
  - Urticaria cholinergic [Unknown]
  - Condition aggravated [Unknown]
  - Conjunctivitis [Recovered/Resolved]
  - Rash [Recovering/Resolving]
  - Inappropriate schedule of product administration [Unknown]

NARRATIVE: CASE EVENT DATE: 20211001
